FAERS Safety Report 10057832 (Version 1)
Quarter: 2014Q2

REPORT INFORMATION
  Report Type: Spontaneous
  Country: GB (occurrence: GB)
  Receive Date: 20140404
  Receipt Date: 20140404
  Transmission Date: 20141212
  Serious: Yes (Death, Other)
  Sender: FDA-Public Use
  Company Number: GB-BRISTOL-MYERS SQUIBB COMPANY-20565560

PATIENT
  Age: 61 Year
  Sex: Male
  Weight: 124 kg

DRUGS (5)
  1. ELIQUIS [Suspect]
     Route: 048
     Dates: start: 20131129
  2. FUROSEMIDE [Concomitant]
     Route: 048
     Dates: start: 20121005
  3. SIMVASTATIN [Concomitant]
     Route: 048
     Dates: start: 20121015
  4. AMOXICILLIN [Concomitant]
     Indication: LOWER RESPIRATORY TRACT INFECTION
     Dates: start: 20131230, end: 20140106
  5. BISOPROLOL [Concomitant]
     Route: 048
     Dates: start: 20100225

REACTIONS (4)
  - Cerebral haemorrhage [Fatal]
  - Hemiparesis [Not Recovered/Not Resolved]
  - Intracranial aneurysm [Not Recovered/Not Resolved]
  - Convulsion [Not Recovered/Not Resolved]
